FAERS Safety Report 16459117 (Version 2)
Quarter: 2019Q3

REPORT INFORMATION
  Report Type: Spontaneous
  Country: DK (occurrence: DK)
  Receive Date: 20190620
  Receipt Date: 20190704
  Transmission Date: 20191004
  Serious: Yes (Hospitalization, Other)
  Sender: FDA-Public Use
  Company Number: PHHY2019DK137730

PATIENT
  Age: 75 Year
  Sex: Female
  Weight: 120 kg

DRUGS (1)
  1. PRAMIPEXOLE. [Suspect]
     Active Substance: PRAMIPEXOLE
     Indication: PRODUCT USED FOR UNKNOWN INDICATION
     Dosage: 0.7 MG, TID
     Route: 065

REACTIONS (6)
  - Blood creatinine increased [Unknown]
  - Medication error [Unknown]
  - Product administration error [Recovering/Resolving]
  - Overdose [Recovering/Resolving]
  - Dyskinesia [Recovering/Resolving]
  - Stereotypy [Recovering/Resolving]
